FAERS Safety Report 9540494 (Version 2)
Quarter: 2013Q4

REPORT INFORMATION
  Report Type: Spontaneous
  Country: JP (occurrence: JP)
  Receive Date: 20130920
  Receipt Date: 20131030
  Transmission Date: 20140711
  Serious: Yes (Other)
  Sender: FDA-Public Use
  Company Number: JP-PFIZER INC-2013269931

PATIENT
  Age: 70 Year
  Sex: Female

DRUGS (4)
  1. LIPITOR [Suspect]
     Dosage: 5 MG, ALTERNATE DAY
     Route: 048
  2. AROTINOLOL HYDROCHLORIDE [Concomitant]
     Dosage: UNK
  3. XYZAL [Concomitant]
     Dosage: UNK
  4. MS ONSHIPPU [Concomitant]
     Dosage: UNK

REACTIONS (3)
  - Haemoglobin decreased [Unknown]
  - Red blood cell count decreased [Unknown]
  - Intentional drug misuse [Unknown]
